FAERS Safety Report 20684633 (Version 3)
Quarter: 2023Q2

REPORT INFORMATION
  Report Type: Spontaneous
  Country: US (occurrence: US)
  Receive Date: 20220407
  Receipt Date: 20230526
  Transmission Date: 20230722
  Serious: No
  Sender: FDA-Public Use
  Company Number: US-PFIZER INC-202100954339

PATIENT
  Age: 71 Year
  Sex: Female

DRUGS (2)
  1. IBRANCE [Suspect]
     Active Substance: PALBOCICLIB
     Indication: Breast cancer female
     Dosage: 100 MG, CYCLIC (1 TABLET ONCE A DAY FOR 21 DAYS EVERY 28 DAYS)
     Route: 048
     Dates: start: 20210112
  2. IBRANCE [Suspect]
     Active Substance: PALBOCICLIB
     Dosage: 100 MG
     Dates: start: 20210415

REACTIONS (3)
  - Alopecia [Unknown]
  - White blood cell count decreased [Unknown]
  - Product dispensing error [Unknown]
